FAERS Safety Report 7878482-2 (Version None)
Quarter: 2011Q4

REPORT INFORMATION
  Report Type: 
  Country: None (occurrence: None)
  Receive Date: 20111101
  Receipt Date: 20111018
  Transmission Date: 20120403
  Serious: Yes (Hospitalization, Disabling)
  Sender: FDA-Public Use
  Company Number: JP-BAYER-2011-063524

PATIENT
  Age: 75 Year
  Sex: Male
  Weight: 48 kg

DRUGS (6)
  1. NEXAVAR [Suspect]
     Indication: LUNG CANCER METASTATIC
  2. NEXAVAR [Suspect]
     Indication: RENAL CELL CARCINOMA
     Dosage: UNK
     Route: 048
     Dates: start: 20101126, end: 20110606
  3. NEXAVAR [Suspect]
     Indication: PLEURAL NEOPLASM
  4. AMLODIPINE [Concomitant]
     Indication: HYPERTENSION
     Dosage: DAILY DOSE 5 MG
     Route: 048
     Dates: start: 20091011
  5. LEVOTHYROXINE SODIUM [Concomitant]
     Indication: HYPOTHYROIDISM
     Dosage: DAILY DOSE 100 ?G
     Route: 048
     Dates: start: 20100416
  6. EVEROLIMUS [Concomitant]
     Dosage: DAILY DOSE 10 MG
     Route: 048
     Dates: start: 20100601, end: 20101116

REACTIONS (5)
  - CEREBRAL INFARCTION [None]
  - MUSCULAR WEAKNESS [None]
  - FALL [None]
  - DYSPHAGIA [None]
  - GAIT DISTURBANCE [None]
